FAERS Safety Report 5653927-7 (Version None)
Quarter: 2008Q1

REPORT INFORMATION
  Report Type: 
  Country: None (occurrence: None)
  Receive Date: 20080306
  Receipt Date: 20080227
  Transmission Date: 20080703
  Serious: Yes (Disabling)
  Sender: FDA-Public Use
  Company Number: PHHO2005ES06760

PATIENT
  Age: 36 Year
  Sex: Male

DRUGS (3)
  1. GLEEVEC [Suspect]
     Indication: ACUTE LYMPHOCYTIC LEUKAEMIA
     Dosage: 400 MG, QD
     Route: 048
     Dates: start: 20050308, end: 20050408
  2. GLEEVEC [Suspect]
     Dates: end: 20050420
  3. SANDIMMUNE [Suspect]
     Indication: STEM CELL TRANSPLANT

REACTIONS (2)
  - MICROANGIOPATHIC HAEMOLYTIC ANAEMIA [None]
  - PLATELET COUNT DECREASED [None]
